APPROVED DRUG PRODUCT: GLYCOPYRROLATE
Active Ingredient: GLYCOPYRROLATE
Strength: 0.2MG/ML
Dosage Form/Route: INJECTABLE;INJECTION
Application: A090963 | Product #001 | TE Code: AP
Applicant: HIKMA FARMACEUTICA (PORTUGAL) SA
Approved: Sep 21, 2011 | RLD: No | RS: Yes | Type: RX